FAERS Safety Report 13120632 (Version 5)
Quarter: 2017Q2

REPORT INFORMATION
  Report Type: Spontaneous
  Country: US (occurrence: US)
  Receive Date: 20170117
  Receipt Date: 20170414
  Transmission Date: 20170830
  Serious: Yes (Other)
  Sender: FDA-Public Use
  Company Number: US-PFIZER INC-2015328194

PATIENT
  Age: 63 Year
  Sex: Male

DRUGS (7)
  1. LASIX [Concomitant]
     Active Substance: FUROSEMIDE
     Indication: PERICARDIAL EFFUSION
     Dosage: UNK
  2. POTASSIUM [Concomitant]
     Active Substance: POTASSIUM
     Indication: MINERAL SUPPLEMENTATION
     Dosage: UNK
  3. SUTENT [Suspect]
     Active Substance: SUNITINIB MALATE
     Indication: PANCREATIC NEUROENDOCRINE TUMOUR METASTATIC
     Dosage: 37.5 MG, DAILY, CONTINUOUSLY
     Dates: start: 20150925
  4. SANDOSTATIN [Concomitant]
     Active Substance: OCTREOTIDE ACETATE
     Dosage: UNK
  5. TURMERIC [Concomitant]
     Active Substance: HERBALS\TURMERIC
     Dosage: 1 DF, 2X/DAY, 1 TAB TWICE DAILY
  6. SUTENT [Suspect]
     Active Substance: SUNITINIB MALATE
     Dosage: 37.5 MG, DAILY
     Dates: start: 201509
  7. IMODIUM [Concomitant]
     Active Substance: LOPERAMIDE HYDROCHLORIDE
     Dosage: UNK

REACTIONS (12)
  - Diarrhoea [Recovering/Resolving]
  - Pruritus [Unknown]
  - Asthenia [Not Recovered/Not Resolved]
  - Cardiac failure congestive [Unknown]
  - Dyspnoea [Unknown]
  - Blood glucose increased [Unknown]
  - Dehydration [Not Recovered/Not Resolved]
  - Fatigue [Unknown]
  - White blood cell count decreased [Unknown]
  - Red blood cell count decreased [Unknown]
  - Neoplasm progression [Unknown]
  - Muscular weakness [Unknown]
